FAERS Safety Report 9359323 (Version 1)
Quarter: 2013Q2

REPORT INFORMATION
  Report Type: Spontaneous
  Country: US (occurrence: US)
  Receive Date: 20130620
  Receipt Date: 20130620
  Transmission Date: 20140414
  Serious: Yes (Hospitalization)
  Sender: FDA-Public Use
  Company Number: PHHY2013US061526

PATIENT
  Age: 26 Year
  Sex: Male

DRUGS (5)
  1. NALOXONE [Suspect]
     Indication: DETOXIFICATION
     Dosage: 30 MG, UNK
  2. PROPOFOL [Suspect]
     Dosage: 100 MG, UNK
  3. CLONIDINE [Suspect]
     Dosage: 0.2 MG, UNK
  4. NITROUS OXIDE [Suspect]
  5. ANESTHETICS NOS [Suspect]
     Dosage: 3 MG, UNK

REACTIONS (3)
  - Pulseless electrical activity [Recovering/Resolving]
  - Mental status changes [Recovering/Resolving]
  - Necrotising fasciitis [Unknown]
